FAERS Safety Report 8129503-3 (Version None)
Quarter: 2012Q1

REPORT INFORMATION
  Report Type: 
  Country: None (occurrence: None)
  Receive Date: 20120210
  Receipt Date: 20120201
  Transmission Date: 20120608
  Serious: Yes (Hospitalization)
  Sender: FDA-Public Use
  Company Number: NL-MEDIMMUNE-MEDI-0014240

PATIENT
  Sex: Female
  Weight: 7.5 kg

DRUGS (3)
  1. PROPRANOLOL HYDROCHLORIDE [Concomitant]
  2. SYNAGIS [Suspect]
     Route: 030
     Dates: end: 20111216
  3. SYNAGIS [Suspect]
     Indication: HEART DISEASE CONGENITAL
     Route: 030
     Dates: start: 20110922, end: 20111117

REACTIONS (1)
  - UPPER RESPIRATORY TRACT INFECTION [None]
